FAERS Safety Report 21374541 (Version 2)
Quarter: 2022Q4

REPORT INFORMATION
  Report Type: Other
  Country: FR (occurrence: FR)
  Receive Date: 20220926
  Receipt Date: 20221010
  Transmission Date: 20230113
  Serious: Yes (Hospitalization)
  Sender: FDA-Public Use
  Company Number: None

PATIENT

DRUGS (14)
  1. SPIRONOLACTONE [Suspect]
     Active Substance: SPIRONOLACTONE
     Indication: Hypertension
     Dosage: UNK
     Route: 048
  2. FENOFIBRATE [Suspect]
     Active Substance: FENOFIBRATE
     Indication: Dyslipidaemia
     Dosage: UNK
     Route: 048
  3. PROPOFOL [Suspect]
     Active Substance: PROPOFOL
     Indication: General anaesthesia
     Dosage: 200 MILLIGRAM
     Route: 042
     Dates: start: 20220901, end: 20220901
  4. SUFENTANIL [Suspect]
     Active Substance: SUFENTANIL
     Indication: General anaesthesia
     Dosage: 35 MICROGRAM
     Route: 042
     Dates: start: 20220901, end: 20220901
  5. CALCIUM CHLORIDE\MAGNESIUM CHLORIDE\MALIC ACID\POTASSIUM CHLORIDE\SODI [Suspect]
     Active Substance: CALCIUM CHLORIDE\MAGNESIUM CHLORIDE\MALIC ACID\POTASSIUM CHLORIDE\SODIUM ACETATE\SODIUM CHLORIDE
     Indication: General anaesthesia
     Dosage: 500 MILLILITER
     Route: 042
     Dates: start: 20220901, end: 20220901
  6. DEXAMETHASONE [Suspect]
     Active Substance: DEXAMETHASONE
     Indication: General anaesthesia
     Dosage: 8 MILLIGRAM
     Route: 042
     Dates: start: 20220901, end: 20220901
  7. VERAPAMIL HYDROCHLORIDE [Suspect]
     Active Substance: VERAPAMIL HYDROCHLORIDE
     Indication: Hypertension
     Dosage: 120 MILLIGRAM, QD
     Route: 048
  8. DOCETAXEL [Suspect]
     Active Substance: DOCETAXEL
     Indication: Prostate cancer metastatic
     Dosage: 1 DOSAGE FORM 21 DAYS
     Route: 042
     Dates: start: 20220316, end: 202207
  9. EPHEDRINE [Suspect]
     Active Substance: EPHEDRINE
     Indication: Hypotension
     Dosage: 6 MILLIGRAM
     Route: 042
     Dates: start: 20220901, end: 20220901
  10. ATRACURIUM [Suspect]
     Active Substance: ATRACURIUM
     Indication: General anaesthesia
     Dosage: 40 MILLIGRAM
     Route: 042
     Dates: start: 20220901, end: 20220901
  11. KETAMINE [Suspect]
     Active Substance: KETAMINE
     Indication: General anaesthesia
     Dosage: 10 MILLIGRAM
     Route: 042
     Dates: start: 20220901, end: 20220901
  12. CEFAZOLIN [Suspect]
     Active Substance: CEFAZOLIN
     Indication: Antibiotic prophylaxis
     Dosage: 2 GRAM
     Route: 042
     Dates: start: 20220901, end: 20220901
  13. HYDROCHLOROTHIAZIDE\LOSARTAN [Suspect]
     Active Substance: HYDROCHLOROTHIAZIDE\LOSARTAN
     Indication: Hypertension
     Dosage: 1 DOSAGE FORM, QD
     Route: 048
  14. NEFOPAM HYDROCHLORIDE [Suspect]
     Active Substance: NEFOPAM HYDROCHLORIDE
     Indication: Pain
     Dosage: 20 MILLIGRAM, QD
     Route: 042
     Dates: start: 20220901, end: 20220901

REACTIONS (1)
  - Embolic stroke [Recovering/Resolving]

NARRATIVE: CASE EVENT DATE: 20220901
